FAERS Safety Report 8191568-0 (Version None)
Quarter: 2012Q1

REPORT INFORMATION
  Report Type: 
  Country: None (occurrence: None)
  Receive Date: 20120307
  Receipt Date: 20111118
  Transmission Date: 20120608
  Serious: No
  Sender: FDA-Public Use
  Company Number: US-ASTRAZENECA-2011SE65860

PATIENT
  Age: 39 Year
  Sex: Female

DRUGS (1)
  1. ZOMIG [Suspect]
     Route: 048

REACTIONS (4)
  - SEASONAL ALLERGY [None]
  - FATIGUE [None]
  - MEMORY IMPAIRMENT [None]
  - MATERNAL EXPOSURE DURING PREGNANCY [None]
